FAERS Safety Report 8294316-9 (Version None)
Quarter: 2012Q2

REPORT INFORMATION
  Report Type: 
  Country: None (occurrence: None)
  Receive Date: 20120416
  Receipt Date: 20120330
  Transmission Date: 20120825
  Serious: Yes (Death, Congenital Anomaly)
  Sender: FDA-Public Use
  Company Number: AUR-5035053

PATIENT

DRUGS (5)
  1. ATAZANAVIR SULFATE (REYATAZ, ATV) [Concomitant]
  2. LAMIVUDIN+ZIDOVUDINE (COMBIVIR, ZDV+3TC) [Concomitant]
  3. RALTEGRAVIR (ISENTRESS, RAL) [Concomitant]
  4. TENOFOVIR DISOPROXIL FUMARATE [Suspect]
     Indication: ACQUIRED IMMUNODEFICIENCY SYNDROME
     Dosage: 1 COURSE ORAL
     Route: 048
     Dates: end: 20111001
  5. LOPINAVIR+RITONAVIR (KALETRA, ALBUVIA, LPV/R) [Concomitant]

REACTIONS (3)
  - TRISOMY 21 [None]
  - ABORTION [None]
  - MATERNAL DRUGS AFFECTING FOETUS [None]
